FAERS Safety Report 5392844-7 (Version None)
Quarter: 2007Q3

REPORT INFORMATION
  Report Type: 
  Country: None (occurrence: None)
  Receive Date: 20070718
  Receipt Date: 20070625
  Transmission Date: 20080115
  Serious: Yes (Hospitalization)
  Sender: FDA-Public Use
  Company Number: S07-UKI-02929-01

PATIENT
  Age: 50 Year
  Sex: Female

DRUGS (4)
  1. CIPRALEX (ESCITALOPRAM) [Suspect]
  2. LAMOTRIGINE [Suspect]
  3. ZYPREXA [Suspect]
  4. ZOPICLONE [Suspect]

REACTIONS (7)
  - DEPRESSED LEVEL OF CONSCIOUSNESS [None]
  - DRUG TOXICITY [None]
  - ELECTROCARDIOGRAM QT PROLONGED [None]
  - INTENTIONAL OVERDOSE [None]
  - MYOCLONUS [None]
  - PNEUMONIA [None]
  - SEROTONIN SYNDROME [None]
